FAERS Safety Report 20397645 (Version 2)
Quarter: 2022Q1

REPORT INFORMATION
  Report Type: Spontaneous
  Country: US (occurrence: US)
  Receive Date: 20220131
  Receipt Date: 20220201
  Transmission Date: 20220423
  Serious: No
  Sender: FDA-Public Use
  Company Number: US-ABBVIE-21K-163-3800905-00

PATIENT
  Sex: Male

DRUGS (2)
  1. HUMIRA [Suspect]
     Active Substance: ADALIMUMAB
     Indication: Colitis ulcerative
     Route: 058
  2. HYDROCORTISONE ENEMA [Concomitant]
     Indication: Product used for unknown indication

REACTIONS (3)
  - Symptom recurrence [Unknown]
  - Rectal discharge [Unknown]
  - Anorectal discomfort [Unknown]
